FAERS Safety Report 22159968 (Version 1)
Quarter: 2023Q1

REPORT INFORMATION
  Report Type: Spontaneous
  Country: FR (occurrence: FR)
  Receive Date: 20230331
  Receipt Date: 20230331
  Transmission Date: 20230417
  Serious: Yes (Other)
  Sender: FDA-Public Use
  Company Number: FR-AstraZeneca-2023A063808

PATIENT
  Age: 7 Decade
  Sex: Female

DRUGS (12)
  1. IMATINIB [Interacting]
     Active Substance: IMATINIB
     Indication: Gastrointestinal stromal tumour
     Dosage: 200 MG, QD
     Route: 065
     Dates: start: 202104
  2. IMATINIB [Interacting]
     Active Substance: IMATINIB
     Dosage: 300 MG, QD
     Route: 065
     Dates: end: 202110
  3. IMATINIB [Interacting]
     Active Substance: IMATINIB
     Dosage: 200 MG, QD
     Route: 065
     Dates: start: 202206
  4. IMATINIB [Interacting]
     Active Substance: IMATINIB
     Dosage: 400 MG, QD
     Route: 065
     Dates: end: 202009
  5. IMATINIB [Interacting]
     Active Substance: IMATINIB
     Dosage: 100 MG, QD
     Route: 065
     Dates: start: 202203, end: 202206
  6. IMATINIB [Interacting]
     Active Substance: IMATINIB
     Dosage: 200 MG, QD
     Route: 065
     Dates: start: 202201, end: 202203
  7. IMATINIB [Interacting]
     Active Substance: IMATINIB
     Dosage: 400 MG, QD
     Route: 065
     Dates: end: 200804
  8. CRIZOTINIB [Interacting]
     Active Substance: CRIZOTINIB
     Indication: Lung adenocarcinoma
     Dosage: 250 MG, QD
     Route: 065
     Dates: start: 202110
  9. CRIZOTINIB [Interacting]
     Active Substance: CRIZOTINIB
     Dosage: 250 MG, QD
     Route: 065
     Dates: start: 202203, end: 202206
  10. CRIZOTINIB [Interacting]
     Active Substance: CRIZOTINIB
     Dosage: 200 MG, QD
     Route: 065
     Dates: end: 202203
  11. OSIMERTINIB [Interacting]
     Active Substance: OSIMERTINIB
     Indication: Lung adenocarcinoma
     Dosage: 40 MG, QD
     Route: 048
     Dates: start: 202009
  12. OSIMERTINIB [Interacting]
     Active Substance: OSIMERTINIB
     Dosage: 80 MG, QD
     Route: 048
     Dates: start: 202009

REACTIONS (4)
  - Blood creatine phosphokinase increased [Unknown]
  - Acute kidney injury [Unknown]
  - Drug resistance mutation [Unknown]
  - Drug interaction [Unknown]
